FAERS Safety Report 17051912 (Version 1)
Quarter: 2019Q4

REPORT INFORMATION
  Report Type: Spontaneous
  Country: US (occurrence: US)
  Receive Date: 20191120
  Receipt Date: 20191120
  Transmission Date: 20200122
  Serious: Yes (Other)
  Sender: FDA-Public Use
  Company Number: NVSC2019US041109

PATIENT
  Age: 23 Year
  Sex: Female

DRUGS (2)
  1. ENOXAPARIN [Suspect]
     Active Substance: ENOXAPARIN
     Indication: CEREBRAL VENOUS SINUS THROMBOSIS
     Route: 065
  2. ACETYLSALICYLIC ACID [Suspect]
     Active Substance: ASPIRIN
     Indication: CEREBRAL VENOUS SINUS THROMBOSIS
     Dosage: 81 MG
     Route: 065

REACTIONS (4)
  - Haematoma [Unknown]
  - Extradural haematoma [Unknown]
  - Intracranial haematoma [Unknown]
  - Hydrocephalus [Unknown]
